FAERS Safety Report 7520129-9 (Version None)
Quarter: 2011Q2

REPORT INFORMATION
  Report Type: 
  Country: None (occurrence: None)
  Receive Date: 20110602
  Receipt Date: 20110530
  Transmission Date: 20111010
  Serious: Yes (Other)
  Sender: FDA-Public Use
  Company Number: DE-ABBOTT-11P-062-0722939-00

PATIENT
  Sex: Female

DRUGS (1)
  1. HUMIRA [Suspect]
     Indication: CROHN'S DISEASE
     Route: 058
     Dates: start: 20110321, end: 20110502

REACTIONS (4)
  - GAIT DISTURBANCE [None]
  - DIABETES MELLITUS [None]
  - LOCALISED INFECTION [None]
  - BLISTER [None]
